FAERS Safety Report 9348880 (Version 1)
Quarter: 2013Q2

REPORT INFORMATION
  Report Type: Spontaneous
  Country: FR (occurrence: FR)
  Receive Date: 20130614
  Receipt Date: 20130614
  Transmission Date: 20140414
  Serious: Yes (Death)
  Sender: FDA-Public Use
  Company Number: FR-JNJFOC-20130606875

PATIENT
  Age: 86 Year
  Sex: 0

DRUGS (1)
  1. TRAMADOL HYDROCHLORIDE [Suspect]
     Indication: PRODUCT USED FOR UNKNOWN INDICATION
     Route: 065

REACTIONS (10)
  - Multi-organ failure [Fatal]
  - Toxicity to various agents [Unknown]
  - Cardio-respiratory arrest [Fatal]
  - Toxicity to various agents [Fatal]
  - Overdose [Unknown]
  - Tachycardia [Unknown]
  - Mydriasis [Unknown]
  - Miosis [Unknown]
  - Hypotension [Unknown]
  - Acidosis [Unknown]
